FAERS Safety Report 20552307 (Version 2)
Quarter: 2022Q1

REPORT INFORMATION
  Report Type: Spontaneous
  Country: US (occurrence: US)
  Receive Date: 20220304
  Receipt Date: 20220308
  Transmission Date: 20220423
  Serious: Yes (Other)
  Sender: FDA-Public Use
  Company Number: US-NOVARTISPH-NVSC2022US047745

PATIENT
  Sex: Female

DRUGS (2)
  1. PROMACTA [Suspect]
     Active Substance: ELTROMBOPAG OLAMINE
     Indication: Immune thrombocytopenia
     Dosage: 25 MG (EVERYDAY MONDAY AND THURSDAY)
     Route: 048
     Dates: start: 202011
  2. PROMACTA [Suspect]
     Active Substance: ELTROMBOPAG OLAMINE
     Dosage: 25 MG
     Route: 065
     Dates: start: 202108

REACTIONS (4)
  - COVID-19 [Unknown]
  - Platelet count decreased [Unknown]
  - Vaginal haemorrhage [Unknown]
  - Haemorrhage [Unknown]
